FAERS Safety Report 5939040-X (Version None)
Quarter: 2008Q4

REPORT INFORMATION
  Report Type: 
  Country: None (occurrence: None)
  Receive Date: 20081103
  Receipt Date: 20081023
  Transmission Date: 20090506
  Serious: Yes (Hospitalization)
  Sender: FDA-Public Use
  Company Number: FR-WYE-H06618008

PATIENT
  Sex: Male

DRUGS (5)
  1. CORDARONE [Suspect]
     Indication: ATRIAL FIBRILLATION
     Route: 048
     Dates: start: 20080623, end: 20080702
  2. CORDARONE [Suspect]
     Route: 048
     Dates: start: 20080703, end: 20080922
  3. SIMVASTATIN [Concomitant]
     Dosage: DOSE UNKNOWN
     Route: 048
     Dates: start: 20080401, end: 20080929
  4. KARDEGIC [Concomitant]
     Dosage: DOSE UNKNOWN
     Route: 048
     Dates: start: 20080401
  5. PREVISCAN [Suspect]
     Route: 048
     Dates: start: 20080623, end: 20080929

REACTIONS (2)
  - CYTOLYTIC HEPATITIS [None]
  - DRUG RASH WITH EOSINOPHILIA AND SYSTEMIC SYMPTOMS [None]
